FAERS Safety Report 21199981 (Version 1)
Quarter: 2022Q3

REPORT INFORMATION
  Report Type: Spontaneous
  Country: US (occurrence: None)
  Receive Date: 20220810
  Receipt Date: 20220810
  Transmission Date: 20221027
  Serious: Yes (Other)
  Sender: FDA-Public Use
  Company Number: None

PATIENT
  Age: 23 Year
  Sex: Female
  Weight: 58.5 kg

DRUGS (1)
  1. ATOMOXETINE [Suspect]
     Active Substance: ATOMOXETINE
     Indication: Attention deficit hyperactivity disorder
     Dosage: 1 MG DAILY ORAL?
     Route: 048

REACTIONS (3)
  - Manufacturing issue [None]
  - Electric shock sensation [None]
  - Product quality issue [None]

NARRATIVE: CASE EVENT DATE: 20220806
